FAERS Safety Report 4757415-1 (Version None)
Quarter: 2005Q3

REPORT INFORMATION
  Report Type: 
  Country: None (occurrence: None)
  Receive Date: 20050829
  Receipt Date: 20050818
  Transmission Date: 20060218
  Serious: Yes (Other)
  Sender: FDA-Public Use
  Company Number: 2005-BP-14305RO

PATIENT
  Age: 55 Year
  Sex: Female

DRUGS (2)
  1. METHOTREXATE [Suspect]
     Indication: RHEUMATOID ARTHRITIS
     Dosage: 10 MG/WEEK (1 IN 1 WK), IM
     Route: 030
  2. PREDNISONE [Concomitant]

REACTIONS (8)
  - BONE EROSION [None]
  - BONE MARROW TRANSPLANT [None]
  - CHROMOSOME ANALYSIS ABNORMAL [None]
  - CHRONIC MYELOID LEUKAEMIA [None]
  - CONDITION AGGRAVATED [None]
  - CUSHINGOID [None]
  - MUSCULOSKELETAL STIFFNESS [None]
  - SYNOVITIS [None]
